FAERS Safety Report 11421152 (Version 2)
Quarter: 2015Q4

REPORT INFORMATION
  Report Type: Spontaneous
  Country: US (occurrence: US)
  Receive Date: 20150826
  Receipt Date: 20151112
  Transmission Date: 20160304
  Serious: Yes (Other)
  Sender: FDA-Public Use
  Company Number: US-LPDUSPRD-20150634

PATIENT
  Age: 48 Year
  Sex: Female

DRUGS (5)
  1. DOBUTAMINE [Suspect]
     Active Substance: DOBUTAMINE\DOBUTAMINE HYDROCHLORIDE
     Dosage: PEAK DOSE: 40MCG/KG/MIN
  2. SALBUTAMOL [Suspect]
     Active Substance: ALBUTEROL
     Dosage: DOSE NOT PROVIDED
     Route: 055
  3. SALMETEROL/FLUTICASONE PROPIONATE 50/500UG [Suspect]
     Active Substance: FLUTICASONE PROPIONATE\SALMETEROL XINAFOATE
     Dosage: DOSE NOT PROVIDED
     Route: 055
  4. ATROPINE SULFATE INJECTION, USP (0101-25) 1MG/ML [Suspect]
     Active Substance: ATROPINE SULFATE
     Dosage: 0.5 MG
     Route: 065
  5. METHYLPHENIDATE. [Suspect]
     Active Substance: METHYLPHENIDATE
     Dosage: DOSE NOT PROVIDED
     Route: 065

REACTIONS (2)
  - Infusion related reaction [None]
  - Stress cardiomyopathy [Unknown]
